FAERS Safety Report 21026779 (Version 1)
Quarter: 2022Q2

REPORT INFORMATION
  Report Type: Spontaneous
  Country: US (occurrence: None)
  Receive Date: 20220629
  Receipt Date: 20220629
  Transmission Date: 20220721
  Serious: No
  Sender: FDA-Public Use
  Company Number: None

PATIENT
  Age: 42 Year
  Sex: Female

DRUGS (7)
  1. HERBALS\MITRAGYNINE [Suspect]
     Active Substance: HERBALS\MITRAGYNINE
     Indication: Anxiety
     Dosage: OTHER QUANTITY : 1 OUNCE(S);?FREQUENCY : DAILY;?
     Route: 048
     Dates: start: 20220413, end: 20220527
  2. YAZ [Concomitant]
     Active Substance: DROSPIRENONE\ETHINYL ESTRADIOL
  3. CALCIUM [Concomitant]
     Active Substance: CALCIUM
  4. VITAMIN D [Concomitant]
     Active Substance: VITAMIN D NOS
  5. GLUCOSAMINE [Concomitant]
     Active Substance: GLUCOSAMINE
  6. FAMOTIDINE [Concomitant]
     Active Substance: FAMOTIDINE
  7. COLLAGEN [Concomitant]
     Active Substance: COLLAGEN

REACTIONS (3)
  - Nausea [None]
  - Vomiting [None]
  - Food poisoning [None]

NARRATIVE: CASE EVENT DATE: 20220522
